FAERS Safety Report 19700460 (Version 1)
Quarter: 2021Q3

REPORT INFORMATION
  Report Type: Spontaneous
  Country: PL (occurrence: PL)
  Receive Date: 20210814
  Receipt Date: 20210814
  Transmission Date: 20211014
  Serious: Yes (Hospitalization)
  Sender: FDA-Public Use
  Company Number: PL-AUROBINDO-AUR-APL-2021-034855

PATIENT
  Age: 67 Year
  Sex: Female
  Weight: 76 kg

DRUGS (4)
  1. PROPOFOL. [Suspect]
     Active Substance: PROPOFOL
     Indication: ANAESTHESIA
     Dosage: UNK (UNK, 1D)
     Route: 042
     Dates: start: 20210721, end: 20210721
  2. AMOXICILLIN+CLAVULANIC ACID [Suspect]
     Active Substance: AMOXICILLIN\CLAVULANIC ACID
     Indication: URINARY TRACT INFECTION
     Dosage: UNK (UNK ((875 + 125) MG, 2X1)
     Route: 048
     Dates: start: 20210714, end: 20210721
  3. BCG VACCINE [Suspect]
     Active Substance: BCG VACCINE
     Indication: BLADDER CANCER
     Dosage: UNK
     Route: 043
     Dates: start: 20210415, end: 20210630
  4. SASANLIMAB. [Suspect]
     Active Substance: SASANLIMAB
     Indication: BLADDER CANCER
     Dosage: UNK (EVERY 4 WEEKS)
     Route: 058
     Dates: start: 20210415, end: 20210602

REACTIONS (1)
  - Dermatitis allergic [Recovering/Resolving]

NARRATIVE: CASE EVENT DATE: 20210723
